FAERS Safety Report 13989405 (Version 1)
Quarter: 2017Q3

REPORT INFORMATION
  Report Type: Spontaneous
  Country: US (occurrence: US)
  Receive Date: 20170920
  Receipt Date: 20170920
  Transmission Date: 20171128
  Serious: No
  Sender: FDA-Public Use
  Company Number: US-AMGEN-USASP2017141899

PATIENT
  Age: 69 Year
  Sex: Female

DRUGS (7)
  1. AMLODIPINE BESYLATE. [Concomitant]
     Active Substance: AMLODIPINE BESYLATE
     Indication: HYPERTENSION
     Dosage: 10 MG, QD
  2. PREVALITE [Concomitant]
     Active Substance: CHOLESTYRAMINE
     Indication: BLOOD CHOLESTEROL
     Dosage: 4 G, TWO TIMES A DAY
  3. BYSTOLIC [Concomitant]
     Active Substance: NEBIVOLOL HYDROCHLORIDE
     Dosage: 5 MG, (ONE TIME IN A DAY)
  4. LIPOSENZE [Concomitant]
     Indication: BLOOD CHOLESTEROL
     Dosage: 150 MG, QD
  5. ENBREL [Suspect]
     Active Substance: ETANERCEPT
     Indication: RHEUMATOID ARTHRITIS
     Dosage: 50 MG, QWK
     Route: 065
     Dates: start: 201708
  6. VASCEPA [Concomitant]
     Active Substance: ICOSAPENT ETHYL
     Indication: BLOOD CHOLESTEROL
     Dosage: 1 G, TWO TIMES A DAY
  7. BYSTOLIC [Concomitant]
     Active Substance: NEBIVOLOL HYDROCHLORIDE
     Indication: HYPERTENSION
     Dosage: 10 MG, (ONE TIME IN A DAY)

REACTIONS (4)
  - Dry mouth [Not Recovered/Not Resolved]
  - Eye irritation [Unknown]
  - Injection site erythema [Unknown]
  - Eye pruritus [Unknown]

NARRATIVE: CASE EVENT DATE: 201709
